FAERS Safety Report 7999305-7 (Version None)
Quarter: 2011Q4

REPORT INFORMATION
  Report Type: 
  Country: None (occurrence: None)
  Receive Date: 20111221
  Receipt Date: 20111216
  Transmission Date: 20120403
  Serious: Yes (Death)
  Sender: FDA-Public Use
  Company Number: US-ASTRAZENECA-2011SE76862

PATIENT
  Age: 38 Year
  Sex: Female

DRUGS (9)
  1. METHADONE HCL [Suspect]
     Route: 048
  2. HYDROCODONE [Suspect]
     Route: 048
  3. LISINOPRIL [Suspect]
     Route: 048
  4. MORPHINE [Suspect]
     Route: 048
  5. LAXATIVE [Suspect]
     Route: 048
  6. CODEINE SULFATE [Suspect]
     Route: 048
  7. ETHANOL [Suspect]
     Route: 048
  8. DIAZEPAM [Suspect]
     Route: 048
  9. PROPOXYPHENE HYDROCHLORIDE [Suspect]
     Route: 048

REACTIONS (3)
  - CARDIO-RESPIRATORY ARREST [None]
  - TOXICITY TO VARIOUS AGENTS [None]
  - COMPLETED SUICIDE [None]
